FAERS Safety Report 5670927-1 (Version None)
Quarter: 2008Q1

REPORT INFORMATION
  Report Type: 
  Country: None (occurrence: None)
  Receive Date: 20080318
  Receipt Date: 20080307
  Transmission Date: 20080703
  Serious: Yes (Hospitalization)
  Sender: FDA-Public Use
  Company Number: B0512437B

PATIENT

DRUGS (1)
  1. DEROXAT [Suspect]
     Indication: DRUG USE FOR UNKNOWN INDICATION
     Dosage: 280MG SINGLE DOSE
     Dates: start: 20080307, end: 20080307

REACTIONS (2)
  - DRUG EXPOSURE DURING PREGNANCY [None]
  - FOETAL DISTRESS SYNDROME [None]
